FAERS Safety Report 7608486-6 (Version None)
Quarter: 2011Q3

REPORT INFORMATION
  Report Type: 
  Country: None (occurrence: None)
  Receive Date: 20110714
  Receipt Date: 20110706
  Transmission Date: 20111222
  Serious: No
  Sender: FDA-Public Use
  Company Number: JP-BRISTOL-MYERS SQUIBB COMPANY-15871718

PATIENT
  Age: 7 Decade
  Sex: Male

DRUGS (1)
  1. TAXOL [Suspect]
     Indication: GASTRIC CANCER
     Route: 041

REACTIONS (2)
  - HYPOAESTHESIA [None]
  - EXTRAVASATION [None]
